FAERS Safety Report 7302745-2 (Version None)
Quarter: 2011Q1

REPORT INFORMATION
  Report Type: 
  Country: None (occurrence: None)
  Receive Date: 20110218
  Receipt Date: 20110214
  Transmission Date: 20110831
  Serious: Yes (Hospitalization, Disabling)
  Sender: FDA-Public Use
  Company Number: US-US-EMD SERONO, INC.-232062J09USA

PATIENT
  Sex: Female
  Weight: 95 kg

DRUGS (6)
  1. FLEXERIL [Concomitant]
     Indication: MUSCLE SPASMS
  2. SAVELLA [Concomitant]
     Indication: FIBROMYALGIA
  3. FLEXERIL [Concomitant]
     Indication: TREMOR
  4. PERCOCET [Concomitant]
     Indication: PAIN
  5. SAVELLA [Concomitant]
     Indication: ANXIETY
     Dates: start: 20090901
  6. REBIF [Suspect]
     Indication: MULTIPLE SCLEROSIS
     Route: 058
     Dates: start: 20081111

REACTIONS (9)
  - MULTIPLE SCLEROSIS RELAPSE [None]
  - CYSTITIS [None]
  - FALL [None]
  - INJECTION SITE REACTION [None]
  - CONSTIPATION [None]
  - PAIN [None]
  - DYSURIA [None]
  - INTERVERTEBRAL DISC PROTRUSION [None]
  - FATIGUE [None]
